FAERS Safety Report 6029464-7 (Version None)
Quarter: 2008Q4

REPORT INFORMATION
  Report Type: 
  Country: None (occurrence: None)
  Receive Date: 20081222
  Receipt Date: 20080826
  Transmission Date: 20090506
  Serious: No
  Sender: FDA-Public Use
  Company Number: ALL1-2008-02271

PATIENT
  Age: 39 Year
  Sex: Female
  Weight: 102 kg

DRUGS (8)
  1. VYVANSE [Suspect]
     Dosage: 30 MG, 1X/DAY:QD, ORAL
     Route: 048
  2. CYMBALTA [Concomitant]
  3. PRILOSEC /00661201/ (OMEPRAZOLE) [Concomitant]
  4. LIBRAX /00033301/ (CHLORDIAZEPOXIDE HYDROCHLORIDE, CLIDINIUM BROMIDE) [Concomitant]
  5. LASIX [Concomitant]
  6. POTASSIUM (POTASSIUM) [Concomitant]
  7. SINGULAIR /01362601/ (MONTELUKAST) [Concomitant]
  8. AMBIEN [Concomitant]

REACTIONS (2)
  - MUSCLE SPASMS [None]
  - PARAESTHESIA [None]
